FAERS Safety Report 8779701 (Version 1)
Quarter: 2012Q4

REPORT INFORMATION
  Report Type: 
  Country: US (occurrence: US)
  Receive Date: 20120912
  Receipt Date: 20120912
  Transmission Date: 20130627
  Serious: No
  Sender: FDA-Public Use
  Company Number: US-TEVA-356118USA

PATIENT
  Age: 52 Year
  Sex: Female
  Weight: 47.67 kg

DRUGS (4)
  1. QNASL [Suspect]
     Indication: NASAL CONGESTION
     Dosage: 80 Microgram Daily; 4 puffs
     Dates: start: 20120823
  2. SULFAMETHOXAZOLE/TRIMETHOPRIM [Concomitant]
     Indication: INFECTION
  3. ALPRAZOLAM [Concomitant]
     Indication: ANXIETY
  4. ZOLPIDEM [Concomitant]
     Indication: INSOMNIA

REACTIONS (1)
  - Pruritus [Not Recovered/Not Resolved]
